FAERS Safety Report 6492127-8 (Version None)
Quarter: 2009Q4

REPORT INFORMATION
  Report Type: 
  Country: None (occurrence: None)
  Receive Date: 20091214
  Receipt Date: 20091210
  Transmission Date: 20100525
  Serious: Yes (Other)
  Sender: FDA-Public Use
  Company Number: US-ASTRAZENECA-2007UW01566

PATIENT
  Age: 29 Year
  Sex: Male
  Weight: 230.4 kg

DRUGS (6)
  1. SEROQUEL [Suspect]
     Indication: DEPRESSION
     Dosage: 200 MG, 300 MG, 500 MG
     Route: 048
     Dates: start: 20030901, end: 20060201
  2. SEROQUEL [Suspect]
     Indication: ANXIETY
     Dosage: 200 MG, 300 MG, 500 MG
     Route: 048
     Dates: start: 20030901, end: 20060201
  3. SEROQUEL [Suspect]
     Route: 048
     Dates: start: 20020101
  4. SEROQUEL [Suspect]
     Route: 048
     Dates: start: 20020101
  5. RISPERDAL [Suspect]
     Indication: DEPRESSION
     Route: 065
     Dates: start: 19970201, end: 20030801
  6. RISPERDAL [Suspect]
     Indication: ANXIETY
     Route: 065
     Dates: start: 19970201, end: 20030801

REACTIONS (4)
  - DIABETIC NEUROPATHY [None]
  - OBESITY [None]
  - TYPE 2 DIABETES MELLITUS [None]
  - WEIGHT INCREASED [None]
